FAERS Safety Report 12633682 (Version 1)
Quarter: 2016Q3

REPORT INFORMATION
  Report Type: Spontaneous
  Country: US (occurrence: US)
  Receive Date: 20160809
  Receipt Date: 20160809
  Transmission Date: 20161109
  Serious: No
  Sender: FDA-Public Use
  Company Number: US-WATSON-2015-19309

PATIENT
  Age: 50 Year
  Sex: Male

DRUGS (4)
  1. TESTOSTERONE CYPIONATE (WATSON LABORATORIES) [Suspect]
     Active Substance: TESTOSTERONE CYPIONATE
     Indication: HYPOGONADISM MALE
     Dosage: 1 INJECTION/WEEK
     Route: 030
     Dates: start: 20150909, end: 20150909
  2. TESTOSTERONE CYPIONATE (WATSON LABORATORIES) [Suspect]
     Active Substance: TESTOSTERONE CYPIONATE
     Dosage: 1 INJECTION/WEEK
     Route: 030
     Dates: start: 20150825, end: 201509
  3. HCG [Concomitant]
     Active Substance: GONADOTROPHIN, CHORIONIC
     Indication: PRODUCT USED FOR UNKNOWN INDICATION
     Dosage: 25 ML, 2/WEEK
     Route: 065
     Dates: start: 2012
  4. PROBENECID. [Concomitant]
     Active Substance: PROBENECID
     Indication: GOUT
     Dosage: UNK, UNKNOWN
     Route: 048
     Dates: start: 2013

REACTIONS (6)
  - Panic attack [Recovered/Resolved]
  - Lethargy [Not Recovered/Not Resolved]
  - Mental fatigue [Recovered/Resolved]
  - Drug ineffective [Not Recovered/Not Resolved]
  - Fatigue [Not Recovered/Not Resolved]
  - Withdrawal syndrome [Not Recovered/Not Resolved]

NARRATIVE: CASE EVENT DATE: 20150831
